FAERS Safety Report 9706321 (Version 3)
Quarter: 2014Q2

REPORT INFORMATION
  Report Type: Spontaneous
  Country: US (occurrence: US)
  Receive Date: 20131125
  Receipt Date: 20140625
  Transmission Date: 20141212
  Serious: Yes (Death)
  Sender: FDA-Public Use
  Company Number: US-BIOGENIDEC-2013BI113971

PATIENT
  Age: 52 Year
  Sex: Male

DRUGS (8)
  1. AVONEX [Suspect]
     Indication: MULTIPLE SCLEROSIS
     Route: 030
  2. AVONEX [Suspect]
     Indication: MULTIPLE SCLEROSIS
     Route: 030
     Dates: start: 20120111, end: 20130817
  3. BABY ASPIRIN [Concomitant]
  4. CO Q 10 [Concomitant]
  5. FISH OIL [Concomitant]
  6. INDOMETHACIN [Concomitant]
  7. NAPROXEN [Concomitant]
  8. PREDNISONE [Concomitant]

REACTIONS (1)
  - Death [Fatal]
